FAERS Safety Report 6517926-5 (Version None)
Quarter: 2009Q4

REPORT INFORMATION
  Report Type: 
  Country: None (occurrence: None)
  Receive Date: 20091224
  Receipt Date: 20091216
  Transmission Date: 20100525
  Serious: Yes (Death)
  Sender: FDA-Public Use
  Company Number: JP-ROCHE-675864

PATIENT
  Sex: Male
  Weight: 49 kg

DRUGS (7)
  1. AVASTIN [Suspect]
     Indication: RECTAL CANCER
     Route: 041
     Dates: start: 20091112, end: 20091112
  2. CAMPTOSAR [Concomitant]
     Route: 041
     Dates: start: 20091112, end: 20091112
  3. FLUOROURACIL [Concomitant]
     Route: 040
     Dates: start: 20091112, end: 20091112
  4. FLUOROURACIL [Concomitant]
     Dosage: ROUTE: INTRAVENOUS DRIP
     Route: 040
     Dates: start: 20091112, end: 20091101
  5. ISOVORIN [Concomitant]
     Route: 041
     Dates: start: 20091112, end: 20091112
  6. KYTRIL [Concomitant]
     Route: 041
     Dates: start: 20091112, end: 20091112
  7. DECADRON [Concomitant]
     Dosage: ROUTE: INJECTABLE (NOT OTHERWISE SPECIFIED)
     Route: 050
     Dates: start: 20091112, end: 20091112

REACTIONS (2)
  - SHOCK HAEMORRHAGIC [None]
  - TUMOUR HAEMORRHAGE [None]
